FAERS Safety Report 9608540 (Version 2)
Quarter: 2013Q4

REPORT INFORMATION
  Report Type: Spontaneous
  Country: JP (occurrence: JP)
  Receive Date: 20131009
  Receipt Date: 20131009
  Transmission Date: 20140711
  Serious: Yes (Other)
  Sender: FDA-Public Use
  Company Number: JP-PFIZER INC-2013281033

PATIENT
  Age: 67 Year
  Sex: Female

DRUGS (5)
  1. CELECOX [Suspect]
     Indication: ANALGESIC THERAPY
     Dosage: 200 MG, DAILY
     Route: 048
     Dates: end: 201308
  2. BAYASPIRIN [Concomitant]
     Dosage: UNK
  3. CRESTOR [Concomitant]
     Dosage: UNK
     Dates: end: 201308
  4. PLAVIX [Concomitant]
     Dosage: UNK
  5. TAKEPRON [Concomitant]
     Dosage: UNK

REACTIONS (4)
  - Myosclerosis [Not Recovered/Not Resolved]
  - Chest discomfort [Not Recovered/Not Resolved]
  - Abdominal pain [Not Recovered/Not Resolved]
  - Weight decreased [Not Recovered/Not Resolved]
